FAERS Safety Report 9624677 (Version 1)
Quarter: 2013Q4

REPORT INFORMATION
  Report Type: Spontaneous
  Country: AU (occurrence: None)
  Receive Date: 20131010
  Receipt Date: 20131010
  Transmission Date: 20140711
  Serious: Yes (Hospitalization)
  Sender: FDA-Public Use
  Company Number: IMP_06837_2013

PATIENT
  Age: 32 Year
  Sex: Female

DRUGS (4)
  1. SODIUM VALPROATE [Suspect]
     Indication: CONVULSION
  2. FLUOXETINE (FLUOXETINE) [Suspect]
     Indication: DEPRESSION
  3. ANTI-ASTHMATICS [Concomitant]
  4. OXAZEPAM [Concomitant]

REACTIONS (2)
  - Convulsion [None]
  - Condition aggravated [None]
